FAERS Safety Report 19757362 (Version 2)
Quarter: 2021Q3

REPORT INFORMATION
  Report Type: Spontaneous
  Country: CH (occurrence: CH)
  Receive Date: 20210827
  Receipt Date: 20210907
  Transmission Date: 20211014
  Serious: Yes (Hospitalization)
  Sender: FDA-Public Use
  Company Number: CH-TEVA-2021-CH-1944719

PATIENT
  Age: 75 Year
  Sex: Male

DRUGS (3)
  1. TACROLIMUS. [Suspect]
     Active Substance: TACROLIMUS
     Indication: IMMUNOSUPPRESSANT DRUG THERAPY
     Dosage: LOW?DOSE
     Route: 065
  2. MYCOPHENOLATE MOFETIL. [Suspect]
     Active Substance: MYCOPHENOLATE MOFETIL
     Indication: IMMUNOSUPPRESSANT DRUG THERAPY
     Dosage: LOW?DOSE
     Route: 065
  3. PREDNISONE. [Suspect]
     Active Substance: PREDNISONE
     Indication: IMMUNOSUPPRESSANT DRUG THERAPY
     Dosage: LOW?DOSE
     Route: 065

REACTIONS (5)
  - Post transplant lymphoproliferative disorder [Recovered/Resolved]
  - Epstein Barr virus positive mucocutaneous ulcer [Recovered/Resolved]
  - Anal fissure [Recovered/Resolved]
  - Haemorrhoids [Recovered/Resolved]
  - Rectal ulcer [Recovered/Resolved]
